FAERS Safety Report 18589310 (Version 3)
Quarter: 2021Q1

REPORT INFORMATION
  Report Type: Spontaneous
  Country: JP (occurrence: JP)
  Receive Date: 20201208
  Receipt Date: 20210115
  Transmission Date: 20210419
  Serious: Yes (Hospitalization)
  Sender: FDA-Public Use
  Company Number: JP-ROCHE-2727637

PATIENT
  Age: 63 Year
  Sex: Male
  Weight: 71 kg

DRUGS (3)
  1. ACTEMRA [Suspect]
     Active Substance: TOCILIZUMAB
     Indication: RHEUMATOID ARTHRITIS
     Route: 058
     Dates: start: 20200831, end: 20201124
  2. ARAVA [Concomitant]
     Active Substance: LEFLUNOMIDE
  3. ACTEMRA [Suspect]
     Active Substance: TOCILIZUMAB
     Indication: RHEUMATOID ARTHRITIS
     Route: 041
     Dates: start: 20090216, end: 20200803

REACTIONS (5)
  - Beta haemolytic streptococcal infection [Unknown]
  - Cellulitis [Recovering/Resolving]
  - Pruritus [Unknown]
  - Peripheral swelling [Recovering/Resolving]
  - Staphylococcal infection [Unknown]

NARRATIVE: CASE EVENT DATE: 20200831
